FAERS Safety Report 23021884 (Version 2)
Quarter: 2023Q4

REPORT INFORMATION
  Report Type: Spontaneous
  Country: FR (occurrence: FR)
  Receive Date: 20231003
  Receipt Date: 20231110
  Transmission Date: 20240109
  Serious: Yes (Life-Threatening, Hospitalization)
  Sender: FDA-Public Use
  Company Number: FR-AFSSAPS-AVLY2023000207

PATIENT
  Age: 23 Year
  Sex: Male

DRUGS (2)
  1. PREGABALIN [Suspect]
     Active Substance: PREGABALIN
     Indication: Product used for unknown indication
     Dosage: LARGE QUANTITY DEPENDING ON THE PATIENT
     Route: 048
  2. RIVOTRIL [Suspect]
     Active Substance: CLONAZEPAM
     Indication: Product used for unknown indication
     Dosage: LARGE QUANTITY DEPENDING ON THE PATIENT
     Route: 048

REACTIONS (2)
  - Drug abuse [Unknown]
  - Coma [Recovered/Resolved]

NARRATIVE: CASE EVENT DATE: 20230427
